FAERS Safety Report 4711834-8 (Version None)
Quarter: 2005Q2

REPORT INFORMATION
  Report Type: 
  Country: None (occurrence: None)
  Receive Date: 20050629
  Receipt Date: 20050524
  Transmission Date: 20051028
  Serious: No
  Sender: FDA-Public Use
  Company Number: 05P-163-0301337-00

PATIENT
  Age: 42 Year
  Sex: Female
  Weight: 114 kg

DRUGS (7)
  1. HUMIRA [Suspect]
     Indication: RHEUMATOID ARTHRITIS
     Dosage: 40 MG, 1 IN 2 WK, SUBCUTANEOUS
     Route: 058
     Dates: start: 20050301
  2. LISINOPRIL [Concomitant]
  3. CLONIDINE [Concomitant]
  4. LOTREL [Concomitant]
  5. IBUPROFEN [Concomitant]
  6. PROPACET 100 [Concomitant]
  7. METFORMIN HYDROCHLORIDE [Concomitant]

REACTIONS (2)
  - BLOOD PRESSURE INADEQUATELY CONTROLLED [None]
  - BLOOD PRESSURE INCREASED [None]
